FAERS Safety Report 14168196 (Version 2)
Quarter: 2018Q2

REPORT INFORMATION
  Report Type: Spontaneous
  Country: US (occurrence: US)
  Receive Date: 20171107
  Receipt Date: 20180515
  Transmission Date: 20180711
  Serious: No
  Sender: FDA-Public Use
  Company Number: US-SA-2017SA100635

PATIENT
  Age: 59 Year
  Sex: Male

DRUGS (17)
  1. TOUJEO [Suspect]
     Active Substance: INSULIN GLARGINE
     Indication: TYPE 2 DIABETES MELLITUS
     Dosage: DOSE:25 UNIT(S)
     Route: 058
     Dates: end: 20170530
  2. TOUJEO [Suspect]
     Active Substance: INSULIN GLARGINE
     Indication: TYPE 2 DIABETES MELLITUS
     Dosage: DOSE:25 UNIT(S)
     Route: 058
     Dates: start: 20170218, end: 20170218
  3. SOLOSTAR [Suspect]
     Active Substance: DEVICE
     Indication: TYPE 2 DIABETES MELLITUS
     Dates: start: 20170218, end: 20170218
  4. LISINOPRIL. [Concomitant]
     Active Substance: LISINOPRIL
     Indication: HYPERTENSION
     Route: 065
     Dates: start: 2010
  5. SOLOSTAR [Suspect]
     Active Substance: DEVICE
     Indication: TYPE 2 DIABETES MELLITUS
     Dates: end: 20170530
  6. SOLOSTAR [Suspect]
     Active Substance: DEVICE
     Indication: TYPE 2 DIABETES MELLITUS
     Dates: end: 20170530
  7. TOUJEO [Suspect]
     Active Substance: INSULIN GLARGINE
     Indication: TYPE 2 DIABETES MELLITUS
     Dosage: DOSE:25 UNIT(S)
     Route: 058
     Dates: start: 20170218, end: 20170218
  8. FOLIC ACID. [Concomitant]
     Active Substance: FOLIC ACID
     Route: 065
     Dates: start: 2000
  9. FENOFIBRATE. [Concomitant]
     Active Substance: FENOFIBRATE
     Indication: BLOOD CHOLESTEROL
     Route: 065
     Dates: start: 2000
  10. SOLOSTAR [Suspect]
     Active Substance: DEVICE
     Indication: TYPE 2 DIABETES MELLITUS
     Dates: start: 20170218, end: 20170218
  11. SOLOSTAR [Suspect]
     Active Substance: DEVICE
     Indication: TYPE 2 DIABETES MELLITUS
     Dates: start: 20170218, end: 20170218
  12. TOUJEO [Suspect]
     Active Substance: INSULIN GLARGINE
     Indication: TYPE 2 DIABETES MELLITUS
     Dosage: DOSE:25 UNIT(S)
     Route: 058
     Dates: start: 20170218, end: 20170218
  13. TOUJEO [Suspect]
     Active Substance: INSULIN GLARGINE
     Indication: TYPE 2 DIABETES MELLITUS
     Dosage: DOSE:25 UNIT(S)
     Route: 058
     Dates: end: 20170530
  14. GABAPENTIN. [Concomitant]
     Active Substance: GABAPENTIN
     Indication: NEUROPATHY PERIPHERAL
     Route: 065
     Dates: start: 2012
  15. LEVOTHYROXINE. [Concomitant]
     Active Substance: LEVOTHYROXINE
     Indication: THROAT CANCER
     Route: 065
     Dates: start: 2013
  16. SOLOSTAR [Suspect]
     Active Substance: DEVICE
     Indication: TYPE 2 DIABETES MELLITUS
     Dates: end: 20170530
  17. TOUJEO [Suspect]
     Active Substance: INSULIN GLARGINE
     Indication: TYPE 2 DIABETES MELLITUS
     Dosage: DOSE:25 UNIT(S)
     Route: 058
     Dates: end: 20170530

REACTIONS (7)
  - Abdominal pain upper [Not Recovered/Not Resolved]
  - Dizziness [Not Recovered/Not Resolved]
  - Wrong technique in product usage process [Unknown]
  - Fatigue [Not Recovered/Not Resolved]
  - Device issue [Unknown]
  - Drug dose omission [Unknown]
  - Injection site haemorrhage [Unknown]

NARRATIVE: CASE EVENT DATE: 20170330
